FAERS Safety Report 5767570-2 (Version None)
Quarter: 2008Q2

REPORT INFORMATION
  Report Type: 
  Country: None (occurrence: None)
  Receive Date: 20080611
  Receipt Date: 20080611
  Transmission Date: 20081010
  Serious: Yes (Death)
  Sender: FDA-Public Use
  Company Number: None

PATIENT
  Age: 80 Year
  Sex: Female
  Weight: 83 kg

DRUGS (1)
  1. HUMIRA [Suspect]
     Indication: RHEUMATOID ARTHRITIS
     Dosage: 40 MG EVERY 2 WEEKS SQ
     Route: 058
     Dates: start: 20070101, end: 20080406

REACTIONS (2)
  - IMMUNOSUPPRESSION [None]
  - OPPORTUNISTIC INFECTION [None]
